FAERS Safety Report 5853256-2 (Version None)
Quarter: 2008Q3

REPORT INFORMATION
  Report Type: 
  Country: None (occurrence: None)
  Receive Date: 20080820
  Receipt Date: 20080806
  Transmission Date: 20090109
  Serious: Yes (Hospitalization)
  Sender: FDA-Public Use
  Company Number: 002#1#2008-00223

PATIENT
  Sex: Male

DRUGS (1)
  1. NEUPRO [Suspect]
     Indication: DRUG USE FOR UNKNOWN INDICATION
     Dosage: 6MG/24H, 1 IN 1 D, TRANSDERMAL, 4MG/24H, 1 IN 1 D, TRANSDERMAL
     Route: 062

REACTIONS (3)
  - MOVEMENT DISORDER [None]
  - MUSCLE RIGIDITY [None]
  - PROCEDURAL COMPLICATION [None]
